FAERS Safety Report 7148492-1 (Version None)
Quarter: 2010Q4

REPORT INFORMATION
  Report Type: 
  Country: None (occurrence: None)
  Receive Date: 20101209
  Receipt Date: 20101130
  Transmission Date: 20110411
  Serious: Yes (Hospitalization, Other)
  Sender: FDA-Public Use
  Company Number: US-ELI_LILLY_AND_COMPANY-US201012001761

PATIENT
  Age: 46 Year
  Sex: Female

DRUGS (4)
  1. EFFIENT [Suspect]
     Dosage: 10 MG, UNKNOWN
     Dates: start: 20101114, end: 20101116
  2. ASPIRIN [Concomitant]
     Dosage: 81 MG, UNKNOWN
     Dates: start: 20101114, end: 20101116
  3. CITALOPRAM [Concomitant]
  4. SIMVASTATIN [Concomitant]

REACTIONS (3)
  - HEAD INJURY [None]
  - LOSS OF CONSCIOUSNESS [None]
  - SUBDURAL HAEMATOMA [None]
